FAERS Safety Report 19180430 (Version 1)
Quarter: 2021Q2

REPORT INFORMATION
  Report Type: Spontaneous
  Country: CN (occurrence: CN)
  Receive Date: 20210426
  Receipt Date: 20210426
  Transmission Date: 20210717
  Serious: Yes (Other)
  Sender: FDA-Public Use
  Company Number: CN-FRESENIUS KABI-FK202103960

PATIENT
  Age: 65 Year
  Sex: Female
  Weight: 61 kg

DRUGS (3)
  1. LIPOVENOES MCT 20% [Suspect]
     Active Substance: EGG PHOSPHOLIPIDS\GLYCERIN\MEDIUM-CHAIN TRIGLYCERIDES\SOYBEAN OIL
     Indication: NUTRITIONAL SUPPLEMENTATION
     Dosage: THE FORM WAS REPORTED AS INJECTION IN THE SOURCE
     Route: 041
     Dates: start: 20210414, end: 20210414
  2. LORATADINE. [Concomitant]
     Active Substance: LORATADINE
     Indication: DERMATITIS
     Route: 048
     Dates: start: 20210413, end: 20210415
  3. CETIRIZINE HYDROCHLORIDE. [Concomitant]
     Active Substance: CETIRIZINE HYDROCHLORIDE
     Indication: DERMATITIS
     Route: 048
     Dates: start: 20210413, end: 20210416

REACTIONS (1)
  - Swelling of eyelid [Recovering/Resolving]

NARRATIVE: CASE EVENT DATE: 20210414
